FAERS Safety Report 16209738 (Version 2)
Quarter: 2019Q2

REPORT INFORMATION
  Report Type: Spontaneous
  Country: US (occurrence: US)
  Receive Date: 20190417
  Receipt Date: 20190509
  Transmission Date: 20190711
  Serious: Yes (Hospitalization, Other)
  Sender: FDA-Public Use
  Company Number: US-ELI_LILLY_AND_COMPANY-US201904004713

PATIENT
  Sex: Male

DRUGS (2)
  1. BASAGLAR [Suspect]
     Active Substance: INSULIN GLARGINE
     Dosage: 60 DOSAGE FORM, DAILY
     Route: 065
     Dates: end: 20190403
  2. BASAGLAR [Suspect]
     Active Substance: INSULIN GLARGINE
     Indication: PRODUCT USED FOR UNKNOWN INDICATION
     Dosage: UNK UNK, PRN
     Route: 065
     Dates: start: 201810

REACTIONS (12)
  - Swelling [Unknown]
  - Gait disturbance [Not Recovered/Not Resolved]
  - Oedema [Unknown]
  - Limb discomfort [Not Recovered/Not Resolved]
  - Coronary artery disease [Unknown]
  - Scrotal swelling [Recovered/Resolved]
  - Blood glucose increased [Unknown]
  - Cardiac disorder [Unknown]
  - Abdominal distension [Not Recovered/Not Resolved]
  - Weight increased [Recovered/Resolved]
  - Peripheral swelling [Not Recovered/Not Resolved]
  - Fluid retention [Unknown]

NARRATIVE: CASE EVENT DATE: 201810
